FAERS Safety Report 24964914 (Version 2)
Quarter: 2025Q2

REPORT INFORMATION
  Report Type: Spontaneous
  Country: CA (occurrence: CA)
  Receive Date: 20250213
  Receipt Date: 20250401
  Transmission Date: 20250716
  Serious: Yes (Hospitalization, Other)
  Sender: SANOFI AVENTIS
  Company Number: CA-SA-2025SA041238

PATIENT
  Age: 70 Year
  Sex: Female

DRUGS (16)
  1. ISATUXIMAB [Suspect]
     Active Substance: ISATUXIMAB
     Indication: Relapsing-remitting multiple sclerosis
     Dates: start: 20231207, end: 20240325
  2. DEXAMETHASONE [Suspect]
     Active Substance: DEXAMETHASONE
     Indication: Relapsing-remitting multiple sclerosis
     Dates: start: 20231207, end: 20250325
  3. POMALYST [Suspect]
     Active Substance: POMALIDOMIDE
     Indication: Relapsing-remitting multiple sclerosis
     Dosage: 4 MG, TID (21 CAP PER 28 DAYS)
     Route: 048
     Dates: start: 20231207, end: 20240325
  4. ACYCLOVIR [Concomitant]
     Active Substance: ACYCLOVIR
     Indication: Deep vein thrombosis
     Dosage: 400 MG, Q5D
     Route: 048
  5. ALLOPURINOL [Concomitant]
     Active Substance: ALLOPURINOL
     Dosage: 300 MG, QD
     Route: 048
  6. APIXABAN [Concomitant]
     Active Substance: APIXABAN
     Dosage: 5 MG, Q5D
     Route: 048
  7. CALCIUM [Concomitant]
     Active Substance: CALCIUM
     Dosage: 500 MG, QD
     Route: 048
  8. CLOBETASOL PROPIONATE [Concomitant]
     Active Substance: CLOBETASOL PROPIONATE
     Route: 061
  9. EPOETIN ALFA [Concomitant]
     Active Substance: ERYTHROPOIETIN
     Indication: Anaemia
     Dosage: UNK, QW, 60000 UNIT Q THRUSDAY, 20000 UNITS AND 40000 UNITS FOR A TOTOTAL DOSE 60000 UNITS
     Route: 058
  10. HYDROMORPHONE [Concomitant]
     Active Substance: HYDROMORPHONE
     Route: 048
  11. LEVOFLOXACIN [Concomitant]
     Active Substance: LEVOFLOXACIN
     Dosage: 500 MG, QD
     Route: 048
  12. POLYETHYLENE GLYCOL 3350 [Concomitant]
     Active Substance: POLYETHYLENE GLYCOL 3350
     Indication: Constipation
     Dosage: 17 G, QD AS NEEDED
     Route: 048
  13. SENOKOT [Concomitant]
     Active Substance: SENNOSIDES
     Dosage: 17.2 MG, QD
     Route: 048
  14. VITAMIN D3 [Concomitant]
     Active Substance: CHOLECALCIFEROL
     Dosage: 1000 U, QD
     Route: 048
  15. GOSERELIN [Concomitant]
     Active Substance: GOSERELIN
  16. ZOLEDRONIC ACID [Concomitant]
     Active Substance: ZOLEDRONIC ACID
     Indication: Bone disorder
     Dosage: 4 MG, Q4W
     Route: 042

REACTIONS (9)
  - Cytokine release syndrome [Unknown]
  - Plasma cell myeloma [Unknown]
  - Haemolysis [Unknown]
  - Hepatic enzyme increased [Unknown]
  - Lymphadenopathy [Unknown]
  - Pulmonary mass [Unknown]
  - Pancytopenia [Unknown]
  - Febrile neutropenia [Unknown]
  - Thyroid mass [Unknown]

NARRATIVE: CASE EVENT DATE: 20231225
